FAERS Safety Report 24454788 (Version 2)
Quarter: 2024Q4

REPORT INFORMATION
  Report Type: Report from Study
  Country: ZA (occurrence: ZA)
  Receive Date: 20241017
  Receipt Date: 20241018
  Transmission Date: 20250115
  Serious: No
  Sender: ROCHE
  Company Number: ZA-ROCHE-3469192

PATIENT
  Age: 54 Year
  Sex: Female
  Weight: 75.0 kg

DRUGS (1)
  1. RITUXIMAB [Suspect]
     Active Substance: RITUXIMAB
     Indication: Rheumatoid arthritis
     Dosage: 6 MONTHLY
     Route: 041
     Dates: start: 20230613

REACTIONS (2)
  - Aspartate aminotransferase increased [Unknown]
  - C-reactive protein increased [Unknown]

NARRATIVE: CASE EVENT DATE: 20231010
